FAERS Safety Report 11831591 (Version 1)
Quarter: 2015Q4

REPORT INFORMATION
  Report Type: Spontaneous
  Country: US (occurrence: US)
  Receive Date: 20151214
  Receipt Date: 20151214
  Transmission Date: 20160305
  Serious: Yes (Other)
  Sender: FDA-Public Use
  Company Number: US-PFIZER INC-2015419264

PATIENT
  Age: 55 Year
  Sex: Female
  Weight: 66.68 kg

DRUGS (2)
  1. SOMA [Concomitant]
     Active Substance: CARISOPRODOL
     Indication: MUSCLE RELAXANT THERAPY
     Dosage: 350MG TABLET THREE TIMES A DAY
     Route: 048
     Dates: start: 20151102
  2. LYRICA [Suspect]
     Active Substance: PREGABALIN
     Indication: PROCEDURAL PAIN
     Dosage: 75 MG, 2X/DAY
     Route: 048
     Dates: start: 20151102

REACTIONS (5)
  - Nerve root compression [Unknown]
  - Pain [Recovering/Resolving]
  - Drug effect delayed [Recovering/Resolving]
  - Gait disturbance [Unknown]
  - Cerebrospinal fluid leakage [Unknown]

NARRATIVE: CASE EVENT DATE: 20151102
